FAERS Safety Report 9493669 (Version 2)
Quarter: 2013Q3

REPORT INFORMATION
  Report Type: Report from Study
  Country: AU (occurrence: AU)
  Receive Date: 20130902
  Receipt Date: 20130902
  Transmission Date: 20140515
  Serious: Yes (Hospitalization, Other)
  Sender: FDA-Public Use
  Company Number: PHHY2013AU091002

PATIENT
  Age: 58 Year
  Sex: Female

DRUGS (19)
  1. ACLASTA [Suspect]
     Indication: OSTEOPOROSIS
     Dosage: 5 MG
     Route: 042
     Dates: start: 20120626
  2. ACLASTA [Suspect]
     Dosage: 5 MG
     Route: 042
     Dates: start: 20130819
  3. AMIODARONE [Concomitant]
     Dosage: 1 DF, IN THE MORNING
  4. ATORVASTATIN [Concomitant]
     Dosage: 1 DF, BEFORE BED
  5. CHLORSIG [Concomitant]
     Dosage: UNK UKN, BID
  6. CHOLECALCIFEROL [Concomitant]
     Dosage: 1 DF, IN THE MORNING
  7. DOTHEP [Concomitant]
     Dosage: 2 DF, BEFORE BED
  8. DURO-K [Concomitant]
     Dosage: 1 DF, BID
  9. GABAPENTIN [Concomitant]
     Dosage: 1 DF, 2-3 NIGHTS
  10. LEVODOPA BENSERAZIDE [Concomitant]
     Dosage: 2 DF, EVERY 4 HRS
  11. MAREVAN [Concomitant]
     Dosage: 1 MG, DAILY AS DIRECTED
  12. MAREVAN [Concomitant]
     Dosage: 3 MG, DAILY
  13. OSMOLAX                            /01625101/ [Concomitant]
     Dosage: 1 DF, DAILY
  14. OSTELIN [Concomitant]
     Dosage: 1 DF, BID
  15. PANADEINE FORTE [Concomitant]
     Dosage: 1/2-2 FOUR TIMES A DAY PRN
  16. PANADOL OSTEO [Concomitant]
     Dosage: 2 DF, TID
  17. SENNA [Concomitant]
     Dosage: 1 DF, BID PRN
  18. SIFROL [Concomitant]
     Dosage: 1 DF, BID
  19. TEMAZE [Concomitant]
     Dosage: 1-2 BEFORE BED  PRN

REACTIONS (6)
  - Femoral neck fracture [Recovered/Resolved]
  - Fall [Recovered/Resolved]
  - Silicon granuloma [Unknown]
  - Breast disorder [Unknown]
  - Depression [Unknown]
  - Vitamin D deficiency [Unknown]
